FAERS Safety Report 12601547 (Version 2)
Quarter: 2016Q3

REPORT INFORMATION
  Report Type: Spontaneous
  Country: JP (occurrence: JP)
  Receive Date: 20160728
  Receipt Date: 20160805
  Transmission Date: 20161109
  Serious: Yes (Other)
  Sender: FDA-Public Use
  Company Number: PHJP2016JP021150

PATIENT
  Age: 67 Year
  Sex: Male

DRUGS (1)
  1. GLIVEC [Suspect]
     Active Substance: IMATINIB MESYLATE
     Indication: GASTROINTESTINAL STROMAL TUMOUR
     Dosage: UNK
     Route: 048

REACTIONS (2)
  - Gastrooesophageal reflux disease [Unknown]
  - Anastomotic leak [Unknown]
